FAERS Safety Report 24078747 (Version 2)
Quarter: 2024Q3

REPORT INFORMATION
  Report Type: Spontaneous
  Country: IT (occurrence: IT)
  Receive Date: 20240711
  Receipt Date: 20240726
  Transmission Date: 20241017
  Serious: Yes (Death)
  Sender: TEVA
  Company Number: IT-TEVA-VS-3217332

PATIENT
  Age: 72 Year
  Sex: Male

DRUGS (2)
  1. CYCLOSPORINE [Suspect]
     Active Substance: CYCLOSPORINE
     Indication: Aplastic anaemia
     Dosage: CYCLOSPORINE A
     Route: 065
  2. ELTROMBOPAG [Suspect]
     Active Substance: ELTROMBOPAG
     Indication: Aplastic anaemia
     Route: 065

REACTIONS (1)
  - Drug ineffective [Fatal]
